FAERS Safety Report 20742103 (Version 13)
Quarter: 2023Q2

REPORT INFORMATION
  Report Type: Report from Study
  Country: US (occurrence: US)
  Receive Date: 20220423
  Receipt Date: 20230417
  Transmission Date: 20230722
  Serious: No
  Sender: FDA-Public Use
  Company Number: US-NOVARTISTESTPH-NVSC2022US094173

PATIENT
  Age: 59 Year
  Sex: Female

DRUGS (2)
  1. KESIMPTA [Suspect]
     Active Substance: OFATUMUMAB
     Indication: Product used for unknown indication
     Dosage: UNK
     Route: 065
  2. KESIMPTA [Suspect]
     Active Substance: OFATUMUMAB
     Dosage: UNK
     Route: 065
     Dates: start: 20221008

REACTIONS (21)
  - Oropharyngeal pain [Unknown]
  - Headache [Recovering/Resolving]
  - Fatigue [Unknown]
  - Coordination abnormal [Unknown]
  - Gait disturbance [Recovering/Resolving]
  - Urinary incontinence [Recovering/Resolving]
  - Anxiety [Unknown]
  - Back pain [Unknown]
  - Poor quality sleep [Unknown]
  - Central nervous system lesion [Recovering/Resolving]
  - Intervertebral disc protrusion [Unknown]
  - Pruritus [Recovering/Resolving]
  - Urticaria [Recovering/Resolving]
  - Hot flush [Recovering/Resolving]
  - Nausea [Unknown]
  - Injection site bruising [Unknown]
  - Injection site pain [Recovering/Resolving]
  - Injection site haemorrhage [Unknown]
  - Injection related reaction [Unknown]
  - Injection site swelling [Unknown]
  - Injection site pruritus [Unknown]

NARRATIVE: CASE EVENT DATE: 20221008
